FAERS Safety Report 24466922 (Version 1)
Quarter: 2024Q4

REPORT INFORMATION
  Report Type: Report from Study
  Country: US (occurrence: US)
  Receive Date: 20241018
  Receipt Date: 20241018
  Transmission Date: 20250115
  Serious: No
  Sender: ROCHE
  Company Number: US-ROCHE-3546942

PATIENT
  Age: 78 Year
  Sex: Female
  Weight: 65.77 kg

DRUGS (14)
  1. XOLAIR [Suspect]
     Active Substance: OMALIZUMAB
     Indication: Idiopathic urticaria
     Dosage: 1 INJECTION IN EACH ARM
     Route: 030
     Dates: start: 20230504, end: 20230711
  2. XOLAIR [Suspect]
     Active Substance: OMALIZUMAB
     Dosage: 1 INJECTION IN EACH ARM?RECEIVED INJECTION ON: 01/NOV/2023, /DEC/2023, /JAN/2024.
     Route: 030
     Dates: start: 20231005, end: 202402
  3. XOLAIR [Suspect]
     Active Substance: OMALIZUMAB
     Dosage: 1 INJECTION IN EACH ARM
     Route: 058
     Dates: start: 202304, end: 20240319
  4. ALLEGRA [Concomitant]
     Active Substance: FEXOFENADINE HYDROCHLORIDE
     Indication: Urticaria
     Dosage: TAKES IN THE MORNINGS
     Route: 048
     Dates: start: 202302, end: 202307
  5. ALLEGRA [Concomitant]
     Active Substance: FEXOFENADINE HYDROCHLORIDE
     Dosage: TAKES IN THE MORNINGS
     Route: 048
     Dates: start: 202309
  6. ZYRTEC [Concomitant]
     Active Substance: CETIRIZINE HYDROCHLORIDE
     Indication: Urticaria
     Dosage: TAKES AT NIGHT
     Route: 048
     Dates: start: 202302, end: 202307
  7. ZYRTEC [Concomitant]
     Active Substance: CETIRIZINE HYDROCHLORIDE
     Dosage: TAKES AT NIGHT
     Route: 048
     Dates: start: 202309
  8. CARVEDILOL [Concomitant]
     Active Substance: CARVEDILOL
     Indication: Blood pressure measurement
  9. LOSARTAN [Concomitant]
     Active Substance: LOSARTAN
     Indication: Blood pressure measurement
     Route: 048
  10. MYRBETRIQ [Concomitant]
     Active Substance: MIRABEGRON
     Indication: Hypertonic bladder
     Route: 048
  11. TIMOLOL [Concomitant]
     Active Substance: TIMOLOL\TIMOLOL MALEATE
     Indication: Glaucoma
     Route: 047
  12. LATANOPROST [Concomitant]
     Active Substance: LATANOPROST
     Indication: Glaucoma
     Route: 047
  13. SIMVASTATIN [Concomitant]
     Active Substance: SIMVASTATIN
     Indication: Blood cholesterol
     Route: 048
     Dates: start: 2006
  14. ASPIRIN [Concomitant]
     Active Substance: ASPIRIN
     Route: 048
     Dates: start: 2012

REACTIONS (7)
  - COVID-19 [Recovered/Resolved]
  - Urticaria [Not Recovered/Not Resolved]
  - Lip swelling [Recovered/Resolved]
  - Off label use [Unknown]
  - Ocular hyperaemia [Recovered/Resolved]
  - Injection site pain [Recovered/Resolved]
  - Eye swelling [Recovered/Resolved]

NARRATIVE: CASE EVENT DATE: 20230504
